FAERS Safety Report 6731230-1 (Version None)
Quarter: 2010Q2

REPORT INFORMATION
  Report Type: 
  Country: None (occurrence: None)
  Receive Date: 20100517
  Receipt Date: 20100517
  Transmission Date: 20101027
  Serious: Yes (Other)
  Sender: FDA-Public Use
  Company Number: None

PATIENT
  Age: 60 Year
  Sex: Female
  Weight: 104.3273 kg

DRUGS (1)
  1. REGLAN [Suspect]
     Indication: PEPTIC ULCER
     Dosage: I TABLET 3 TIMES A DAY PO
     Route: 048
     Dates: start: 20080315, end: 20080329

REACTIONS (6)
  - CONFUSIONAL STATE [None]
  - IMPAIRED WORK ABILITY [None]
  - INHIBITORY DRUG INTERACTION [None]
  - MALAISE [None]
  - RESTLESSNESS [None]
  - WITHDRAWAL SYNDROME [None]
